FAERS Safety Report 7831011-1 (Version None)
Quarter: 2011Q4

REPORT INFORMATION
  Report Type: 
  Country: None (occurrence: None)
  Receive Date: 20111021
  Receipt Date: 20111018
  Transmission Date: 20120403
  Serious: Yes (Other)
  Sender: FDA-Public Use
  Company Number: US-PFIZER INC-2011213034

PATIENT
  Sex: Female

DRUGS (3)
  1. LYRICA [Suspect]
     Indication: FIBROMYALGIA
     Dosage: UNK
  2. OXYCODONE HCL [Suspect]
     Dosage: UNK
  3. OPANA [Suspect]
     Indication: FIBROMYALGIA
     Dosage: UNK

REACTIONS (6)
  - MIGRAINE [None]
  - DEPRESSION [None]
  - INSOMNIA [None]
  - ANXIETY [None]
  - OEDEMA PERIPHERAL [None]
  - HEADACHE [None]
